FAERS Safety Report 16144615 (Version 3)
Quarter: 2019Q2

REPORT INFORMATION
  Report Type: Spontaneous
  Country: US (occurrence: US)
  Receive Date: 20190402
  Receipt Date: 20190516
  Transmission Date: 20190711
  Serious: Yes (Other)
  Sender: FDA-Public Use
  Company Number: US-009507513-1904USA000020

PATIENT
  Age: 24 Year
  Sex: Female
  Weight: 110.2 kg

DRUGS (8)
  1. NEXPLANON [Suspect]
     Active Substance: ETONOGESTREL
     Indication: CONTRACEPTION
     Dosage: 68 MILLIGRAM (1 ROD), EVERY 3 YEARS
     Route: 059
     Dates: end: 20190220
  2. XYZAL [Concomitant]
     Active Substance: LEVOCETIRIZINE DIHYDROCHLORIDE
     Dosage: 5 MG, DAILY
  3. CITALOPRAM [Concomitant]
     Active Substance: CITALOPRAM HYDROBROMIDE
     Dosage: 20 MG, DAILY
     Route: 048
  4. PANTOPRAZOLE [Concomitant]
     Active Substance: PANTOPRAZOLE
     Dosage: 40 MG, DAILY
     Route: 048
  5. NEXPLANON [Suspect]
     Active Substance: ETONOGESTREL
     Dosage: 68 MILLIGRAM (1 ROD), EVERY 3 YEARS
     Route: 059
     Dates: start: 20190220, end: 2019
  6. NEXPLANON [Suspect]
     Active Substance: ETONOGESTREL
     Dosage: 68 MILLIGRAM (1 ROD), EVERY 3 YEARS
     Route: 059
     Dates: start: 20190404
  7. SINGULAIR [Concomitant]
     Active Substance: MONTELUKAST SODIUM
     Dosage: 10 MG, DAILY
     Route: 048
  8. ZANTAC [Concomitant]
     Active Substance: RANITIDINE HYDROCHLORIDE
     Dosage: 50 G, DAILY
     Route: 048

REACTIONS (8)
  - Implant site swelling [Recovered/Resolved]
  - Device expulsion [Recovered/Resolved]
  - Device dislocation [Recovered/Resolved]
  - Impaired healing [Recovered/Resolved]
  - Complication associated with device [Recovered/Resolved]
  - Implant site fibrosis [Unknown]
  - Device deployment issue [Recovered/Resolved]
  - Complication of device removal [Recovered/Resolved]

NARRATIVE: CASE EVENT DATE: 2019
